FAERS Safety Report 4819442-5 (Version None)
Quarter: 2005Q4

REPORT INFORMATION
  Report Type: 
  Country: None (occurrence: None)
  Receive Date: 20051103
  Receipt Date: 20051026
  Transmission Date: 20060501
  Serious: Yes (Death, Other)
  Sender: FDA-Public Use
  Company Number: US-JNJFOC-20050905006

PATIENT
  Sex: Male

DRUGS (5)
  1. NATRECOR [Suspect]
     Route: 042
  2. ALLOPURINOL [Concomitant]
     Indication: GOUT
  3. CARVEDILOL [Concomitant]
  4. LANOXIN [Concomitant]
     Indication: ATRIAL FIBRILLATION
  5. GLUCAPHAGE [Concomitant]

REACTIONS (1)
  - MYELOID LEUKAEMIA [None]
